FAERS Safety Report 24973588 (Version 1)
Quarter: 2025Q1

REPORT INFORMATION
  Report Type: Spontaneous
  Country: US (occurrence: US)
  Receive Date: 20250217
  Receipt Date: 20250217
  Transmission Date: 20250408
  Serious: No
  Sender: CIPLA
  Company Number: US-CIPLA LTD.-2024US14065

PATIENT

DRUGS (3)
  1. GABAPENTIN [Suspect]
     Active Substance: GABAPENTIN
     Indication: Pain
     Dosage: 100 MILLIGRAM, QD (ONCE EVERY NIGHT)
     Route: 048
     Dates: start: 20241120
  2. CARBIDOPA [Concomitant]
     Active Substance: CARBIDOPA
     Indication: Parkinson^s disease
     Dosage: 25 MILLIGRAM, TID (3 TIMES A DAY)
     Route: 065
     Dates: start: 2011
  3. LEVODOPA [Concomitant]
     Active Substance: LEVODOPA
     Indication: Parkinson^s disease
     Route: 065
     Dates: start: 2011

REACTIONS (4)
  - Dysstasia [Unknown]
  - Abdominal discomfort [Not Recovered/Not Resolved]
  - Dizziness [Not Recovered/Not Resolved]
  - Malaise [Unknown]

NARRATIVE: CASE EVENT DATE: 20241101
